FAERS Safety Report 11092687 (Version 6)
Quarter: 2015Q4

REPORT INFORMATION
  Report Type: Spontaneous
  Country: US (occurrence: US)
  Receive Date: 20150506
  Receipt Date: 20151214
  Transmission Date: 20160304
  Serious: Yes (Hospitalization, Other)
  Sender: FDA-Public Use
  Company Number: US-BAYER-2015-183126

PATIENT
  Age: 29 Year
  Sex: Female
  Weight: 61 kg

DRUGS (5)
  1. LOESTRIN NOS [Concomitant]
     Active Substance: ETHINYL ESTRADIOL\NORETHINDRONE ACETATE
  2. MIRENA [Suspect]
     Active Substance: LEVONORGESTREL
     Indication: CONTRACEPTION
     Dosage: 20 MCG/24HR, CONT
     Route: 015
     Dates: start: 20060210, end: 20121213
  3. BABY ASPIRIN [Concomitant]
     Active Substance: ASPIRIN
  4. PRENATAL VITAMINS [Concomitant]
     Active Substance: VITAMINS
  5. PROMETRIUM [Concomitant]
     Active Substance: PROGESTERONE

REACTIONS (18)
  - Infertility female [None]
  - Device dislocation [None]
  - Dysmenorrhoea [None]
  - Female sterilisation [None]
  - Depression [Not Recovered/Not Resolved]
  - Menorrhagia [None]
  - Habitual abortion [None]
  - Injury [None]
  - Anxiety [Not Recovered/Not Resolved]
  - Device use error [None]
  - Pregnancy with contraceptive device [None]
  - Pelvic pain [None]
  - Scar [None]
  - Drug ineffective [None]
  - Uterine perforation [None]
  - Emotional distress [None]
  - Device issue [None]
  - Marital problem [None]

NARRATIVE: CASE EVENT DATE: 2006
